FAERS Safety Report 17822154 (Version 1)
Quarter: 2020Q2

REPORT INFORMATION
  Report Type: Spontaneous
  Country: IL (occurrence: IL)
  Receive Date: 20200526
  Receipt Date: 20200526
  Transmission Date: 20200714
  Serious: Yes (Other)
  Sender: FDA-Public Use
  Company Number: IL-AMGEN-ISRSP2020081681

PATIENT
  Age: 89 Year
  Sex: Female

DRUGS (2)
  1. PROLIA [Suspect]
     Active Substance: DENOSUMAB
     Indication: PRODUCT USED FOR UNKNOWN INDICATION
     Dosage: UNK UNK, Q6MO
     Route: 065
     Dates: start: 2016
  2. PROLIA [Suspect]
     Active Substance: DENOSUMAB
     Dosage: UNK UNK, Q8MO
     Route: 065
     Dates: start: 202004

REACTIONS (5)
  - Off label use [Unknown]
  - Back pain [Unknown]
  - Vitamin D decreased [Unknown]
  - Hepatic enzyme increased [Unknown]
  - Compression fracture [Unknown]

NARRATIVE: CASE EVENT DATE: 2020
